FAERS Safety Report 7967515 (Version 2)
Quarter: 2013Q2

REPORT INFORMATION
  Report Type: Spontaneous
  Country: US (occurrence: US)
  Receive Date: 20110531
  Receipt Date: 20130429
  Transmission Date: 20140414
  Serious: Yes (Other)
  Sender: FDA-Public Use
  Company Number: US-BAYER-2011-045733

PATIENT
  Age: 43 Year
  Sex: Female

DRUGS (7)
  1. YAZ [Suspect]
     Indication: PRODUCT USED FOR UNKNOWN INDICATION
     Dosage: UNK
     Dates: start: 200603, end: 200904
  2. OCELLA [Suspect]
     Indication: PRODUCT USED FOR UNKNOWN INDICATION
     Dosage: UNK
     Dates: start: 200603, end: 200904
  3. YASMIN [Suspect]
     Indication: PRODUCT USED FOR UNKNOWN INDICATION
  4. MULTIVITAMIN [Concomitant]
     Dosage: UNK
     Route: 048
     Dates: start: 20090428
  5. AMOXICILLIN [Concomitant]
     Dosage: 875 MG, UNK
     Route: 048
     Dates: start: 20090224
  6. PROMETHAZINE [Concomitant]
     Dosage: 25 MG, UNK
     Route: 048
     Dates: start: 20090531
  7. NEOMYCIN/BACITRACIN W/POLYMYCIN B [Concomitant]
     Dosage: UNK
     Route: 061
     Dates: start: 20090224

REACTIONS (1)
  - Retinal vascular occlusion [None]
